FAERS Safety Report 4615735-5 (Version None)
Quarter: 2005Q2

REPORT INFORMATION
  Report Type: 
  Country: None (occurrence: None)
  Receive Date: 20050310
  Receipt Date: 20050204
  Transmission Date: 20051028
  Serious: Yes (Other)
  Sender: FDA-Public Use
  Company Number: F03200500020

PATIENT
  Age: 54 Year
  Sex: Male

DRUGS (11)
  1. ELOXATIN [Suspect]
     Indication: COLON CANCER
     Dosage: ^8 MG 1/2 WEEK^ - INTRAVENOUS NOS
     Route: 042
     Dates: start: 20050121, end: 20050121
  2. LEUCOVORIN CALCIUM [Suspect]
     Indication: COLON CANCER
     Dosage: INTRAVENOUS NOS
     Route: 042
     Dates: start: 20050121, end: 20050121
  3. FLUOROURACIL [Suspect]
     Indication: COLON CANCER
     Dosage: INTRAVENOUS NOS
     Route: 042
     Dates: start: 20050107, end: 20050107
  4. PROCHLORPERAZINE EDISYLATE [Concomitant]
  5. WARFARIN SODIUM [Concomitant]
  6. FERROUS SULFATE TAB [Concomitant]
  7. POTASSIUM CHLORIDE [Concomitant]
  8. MULTI-VITAMINS [Concomitant]
  9. ESOMEPRAZOLE [Concomitant]
  10. SAW PALMETTO [Concomitant]
  11. TERAZOSIN [Concomitant]

REACTIONS (7)
  - DYSPNOEA [None]
  - FLUSHING [None]
  - HYPERSENSITIVITY [None]
  - HYPOTENSION [None]
  - PRURITUS [None]
  - RHINITIS [None]
  - URTICARIA [None]
